FAERS Safety Report 10626155 (Version 1)
Quarter: 2014Q4

REPORT INFORMATION
  Report Type: Spontaneous
  Country: US (occurrence: US)
  Receive Date: 20141204
  Receipt Date: 20141204
  Transmission Date: 20150529
  Serious: Yes (Other)
  Sender: FDA-Public Use
  Company Number: PHHY2014US153537

PATIENT
  Age: 8 Year
  Sex: Female
  Weight: 18.14 kg

DRUGS (22)
  1. AMPHETAMINE+DEXTROAMPHETAMINE [Suspect]
     Active Substance: AMPHETAMINE ADIPATE\DEXTROAMPHETAMINE
     Indication: CENTRAL NERVOUS SYSTEM STIMULATION
     Dosage: 20 MG, UNK
     Route: 065
  2. RISPERIDONE. [Suspect]
     Active Substance: RISPERIDONE
     Indication: EMOTIONAL DISORDER
     Dosage: 3 MG, 1 MG IN THE MORNING AND 2 MG AT BEDTIME
     Route: 065
  3. LISDEXAMFETAMINE [Suspect]
     Active Substance: LISDEXAMFETAMINE
     Indication: CENTRAL NERVOUS SYSTEM STIMULATION
     Dosage: 20 MG, QD
     Route: 065
  4. GUANFACINE. [Concomitant]
     Active Substance: GUANFACINE
     Indication: CENTRAL NERVOUS SYSTEM STIMULATION
     Dosage: 2 MG, QD
     Route: 065
  5. DIVALPROEX [Suspect]
     Active Substance: DIVALPROEX SODIUM
     Indication: EMOTIONAL DISORDER
     Dosage: 652 MG, 250 MG IN THE MORNING AND 375 MG AT BEDTIME
     Route: 065
  6. MELATONIN [Concomitant]
     Active Substance: MELATONIN
     Indication: SLEEP DISORDER
     Dosage: 5 MG, QD, AT BED TIME
  7. CLONIDINE. [Suspect]
     Active Substance: CLONIDINE
     Indication: IMPULSIVE BEHAVIOUR
     Dosage: 0.05 MG, TID
  8. CLONIDINE. [Suspect]
     Active Substance: CLONIDINE
     Indication: PSYCHOMOTOR HYPERACTIVITY
     Dosage: 0.1 MG, QID
     Route: 065
  9. HYDROXYZINE [Suspect]
     Active Substance: HYDROXYZINE\HYDROXYZINE HYDROCHLORIDE
     Indication: ANXIETY
     Dosage: 12.5 MG, TID
     Route: 065
  10. LITHIUM [Concomitant]
     Active Substance: LITHIUM CARBONATE
     Indication: AFFECTIVE DISORDER
     Dosage: 300 MG, BID
  11. METHYLPHENIDATE [Suspect]
     Active Substance: METHYLPHENIDATE
     Indication: CENTRAL NERVOUS SYSTEM STIMULATION
     Route: 065
  12. OXCARBAZEPINE. [Suspect]
     Active Substance: OXCARBAZEPINE
     Indication: AFFECTIVE DISORDER
     Route: 065
  13. TRAZODONE [Suspect]
     Active Substance: TRAZODONE HYDROCHLORIDE
     Indication: IRRITABILITY
     Route: 065
  14. CLONIDINE. [Suspect]
     Active Substance: CLONIDINE
     Dosage: 0.3 MG, 0.1 MG IN THE MORNING AND AT NOON AND 0.2 MG EVERY NIGHT
  15. TRAZODONE [Suspect]
     Active Substance: TRAZODONE HYDROCHLORIDE
     Indication: SLEEP DISORDER
     Dosage: 150 MG, QD AT BED TIME
     Route: 065
  16. CITALOPRAM [Suspect]
     Active Substance: CITALOPRAM HYDROBROMIDE
     Indication: AFFECTIVE DISORDER
     Dosage: 10 MG, UNK
     Route: 065
  17. TRAZODONE [Suspect]
     Active Substance: TRAZODONE HYDROCHLORIDE
     Dosage: 200 MG, QD, AT BED TIME
     Route: 065
  18. HYDROXYZINE [Suspect]
     Active Substance: HYDROXYZINE\HYDROXYZINE HYDROCHLORIDE
     Dosage: 12.5 MG, QID
     Route: 065
  19. D-THREO-METHYLPHENIDATE [Suspect]
     Active Substance: DEXMETHYLPHENIDATE HYDROCHLORIDE
     Indication: CENTRAL NERVOUS SYSTEM STIMULATION
     Dosage: 10 MG, QD
     Route: 065
  20. RISPERIDONE. [Suspect]
     Active Substance: RISPERIDONE
     Dosage: 1 MG, BID
     Route: 065
  21. CITALOPRAM [Suspect]
     Active Substance: CITALOPRAM HYDROBROMIDE
     Dosage: 10 MG, QD
     Route: 065
  22. MELATONIN [Concomitant]
     Active Substance: MELATONIN
     Dosage: 5 MG, PRN

REACTIONS (22)
  - Developmental coordination disorder [None]
  - Aggression [Unknown]
  - Abnormal behaviour [Unknown]
  - Therapeutic response decreased [Unknown]
  - Learning disorder [None]
  - Psychomotor hyperactivity [None]
  - Fatigue [None]
  - Sexually inappropriate behaviour [None]
  - Affective disorder [Unknown]
  - Intentional self-injury [None]
  - Aggression [None]
  - Sedation [Unknown]
  - School refusal [None]
  - Dysgraphia [None]
  - Anxiety [None]
  - Suicidal behaviour [Unknown]
  - Terminal insomnia [None]
  - Impulsive behaviour [None]
  - Screaming [None]
  - Irritability [None]
  - Restlessness [None]
  - Language disorder [None]
